FAERS Safety Report 20991886 (Version 6)
Quarter: 2022Q4

REPORT INFORMATION
  Report Type: Spontaneous
  Country: CA (occurrence: CA)
  Receive Date: 20220622
  Receipt Date: 20221003
  Transmission Date: 20230113
  Serious: Yes (Other)
  Sender: FDA-Public Use
  Company Number: CA-PFIZER INC-202200845261

PATIENT
  Age: 64 Year
  Sex: Female

DRUGS (2)
  1. ABRILADA [Suspect]
     Active Substance: ADALIMUMAB-AFZB
     Indication: Crohn^s disease
     Dosage: 40 MG,EVERY 2 WEEKS
     Route: 058
     Dates: start: 20220429
  2. ABRILADA [Suspect]
     Active Substance: ADALIMUMAB-AFZB
     Dosage: 40MG, EVERY 2 WEEKS
     Route: 058
     Dates: start: 20220610, end: 2022

REACTIONS (14)
  - Angina pectoris [Recovered/Resolved]
  - Blood pressure systolic increased [Unknown]
  - Chest discomfort [Unknown]
  - Throat tightness [Unknown]
  - Hypoaesthesia [Unknown]
  - Back pain [Unknown]
  - Cardiac disorder [Not Recovered/Not Resolved]
  - Headache [Not Recovered/Not Resolved]
  - Faeces soft [Not Recovered/Not Resolved]
  - Diarrhoea [Unknown]
  - Incorrect dose administered by device [Unknown]
  - Device leakage [Unknown]
  - Accidental exposure to product [Unknown]
  - Exposure via skin contact [Unknown]

NARRATIVE: CASE EVENT DATE: 20220101
